FAERS Safety Report 5416988-6 (Version None)
Quarter: 2007Q3

REPORT INFORMATION
  Report Type: 
  Country: None (occurrence: None)
  Receive Date: 20070718
  Receipt Date: 20060712
  Transmission Date: 20080115
  Serious: Yes (Hospitalization)
  Sender: FDA-Public Use
  Company Number: 2006063196

PATIENT
  Age: 47 Year
  Sex: Male
  Weight: 64.4108 kg

DRUGS (2)
  1. CELEBREX [Suspect]
     Indication: CARPAL TUNNEL SYNDROME
     Dosage: 400 MG (200 MG,2 IN 1 D)
     Dates: start: 20040701, end: 20040808
  2. CELEBREX [Suspect]
     Indication: PAIN
     Dosage: 400 MG (200 MG,2 IN 1 D)
     Dates: start: 20040701, end: 20040808

REACTIONS (1)
  - MYOCARDIAL INFARCTION [None]
